FAERS Safety Report 13161022 (Version 1)
Quarter: 2017Q1

REPORT INFORMATION
  Report Type: Spontaneous
  Country: US (occurrence: US)
  Receive Date: 20170130
  Receipt Date: 20170130
  Transmission Date: 20170428
  Serious: No
  Sender: FDA-Public Use
  Company Number: US-BRISTOL-MYERS SQUIBB COMPANY-BMS-2017-004438

PATIENT
  Sex: Male

DRUGS (1)
  1. DAKLINZA [Suspect]
     Active Substance: DACLATASVIR
     Indication: HEPATITIS C
     Dosage: 60 MG, QD
     Route: 048
     Dates: start: 20161208

REACTIONS (6)
  - Toothache [Unknown]
  - Paranasal sinus discomfort [Unknown]
  - Therapeutic aspiration [Unknown]
  - Throat irritation [Unknown]
  - Product use issue [Unknown]
  - Upper respiratory tract infection [Unknown]
